FAERS Safety Report 13773070 (Version 2)
Quarter: 2019Q4

REPORT INFORMATION
  Report Type: Spontaneous
  Country: GB (occurrence: GB)
  Receive Date: 20170720
  Receipt Date: 20191021
  Transmission Date: 20200122
  Serious: Yes (Hospitalization, Other)
  Sender: FDA-Public Use
  Company Number: GB-PFIZER INC-2017307067

PATIENT
  Age: 64 Year
  Sex: Female
  Weight: 70 kg

DRUGS (23)
  1. BISOPROLOL FUMARATE. [Concomitant]
     Active Substance: BISOPROLOL FUMARATE
  2. LOPERAMIDE [Concomitant]
     Active Substance: LOPERAMIDE
  3. PREDNISOLONE. [Concomitant]
     Active Substance: PREDNISOLONE
  4. AMLODIPINE [Concomitant]
     Active Substance: AMLODIPINE BESYLATE
  5. CALCICHEW D3 [Concomitant]
     Active Substance: CALCIUM\CHOLECALCIFEROL
  6. RAMIPRIL. [Concomitant]
     Active Substance: RAMIPRIL
  7. ASPIRIN. [Concomitant]
     Active Substance: ASPIRIN
  8. FORTISIP [Concomitant]
     Active Substance: CARBOHYDRATES\FATTY ACIDS\MINERALS\PROTEIN\VITAMINS
  9. PREGABALIN. [Concomitant]
     Active Substance: PREGABALIN
  10. SODIUM VALPROATE [Suspect]
     Active Substance: VALPROATE SODIUM
     Dosage: UNK
  11. CHLORPHENAMINE [Concomitant]
     Active Substance: CHLORPHENIRAMINE MALEATE
  12. DULOXETINE. [Concomitant]
     Active Substance: DULOXETINE
  13. OMEPRAZOLE. [Concomitant]
     Active Substance: OMEPRAZOLE
  14. RANOLAZINE. [Concomitant]
     Active Substance: RANOLAZINE
  15. MEROPENEM. [Suspect]
     Active Substance: MEROPENEM
     Indication: SEPSIS
     Dosage: 1 G, UNK
     Route: 042
     Dates: start: 20170622, end: 20170628
  16. CODEINE HYDROCHLORIDE [Concomitant]
     Active Substance: CODEINE HYDROCHLORIDE
  17. FUROSEMIDE. [Concomitant]
     Active Substance: FUROSEMIDE
  18. HYOSCINE BUTYLBROMIDE [Concomitant]
     Active Substance: BUTYLSCOPOLAMINE BROMIDE
  19. MORPHINE [Concomitant]
     Active Substance: MORPHINE
  20. NICORANDIL [Concomitant]
     Active Substance: NICORANDIL
  21. LINACLOTIDE [Concomitant]
     Active Substance: LINACLOTIDE
  22. AMITRIPTYLINE [Concomitant]
     Active Substance: AMITRIPTYLINE
  23. ISOSORBIDE MONONITRATE. [Concomitant]
     Active Substance: ISOSORBIDE MONONITRATE

REACTIONS (3)
  - Convulsive threshold lowered [Recovered/Resolved]
  - Seizure [Recovered/Resolved]
  - Product dose omission [Unknown]

NARRATIVE: CASE EVENT DATE: 20170622
